FAERS Safety Report 7128950-6 (Version None)
Quarter: 2010Q4

REPORT INFORMATION
  Report Type: 
  Country: None (occurrence: None)
  Receive Date: 20101130
  Receipt Date: 20101124
  Transmission Date: 20110411
  Serious: Yes (Life-Threatening, Hospitalization)
  Sender: FDA-Public Use
  Company Number: B0686648A

PATIENT
  Age: 54 Year
  Sex: Male

DRUGS (6)
  1. ARTIST [Suspect]
     Dosage: 10MG PER DAY
     Route: 048
     Dates: end: 20101113
  2. CALBLOCK [Suspect]
     Route: 048
     Dates: end: 20101113
  3. LASIX [Concomitant]
  4. SELARA [Concomitant]
  5. LANIRAPID [Concomitant]
  6. LANSOPRAZOLE [Concomitant]

REACTIONS (3)
  - CARDIAC ARREST [None]
  - INTENTIONAL DRUG MISUSE [None]
  - OVERDOSE [None]
